FAERS Safety Report 7478035-4 (Version None)
Quarter: 2011Q2

REPORT INFORMATION
  Report Type: 
  Country: None (occurrence: None)
  Receive Date: 20110511
  Receipt Date: 20110511
  Transmission Date: 20111010
  Serious: Yes (Other)
  Sender: FDA-Public Use
  Company Number: None

PATIENT
  Sex: Female

DRUGS (1)
  1. FERUMOXIDES [Suspect]
     Dosage: 510 MG IV
     Route: 042

REACTIONS (8)
  - RESPIRATORY RATE INCREASED [None]
  - RESTLESSNESS [None]
  - CHEST DISCOMFORT [None]
  - ANXIETY [None]
  - BLOOD PRESSURE INCREASED [None]
  - DYSGEUSIA [None]
  - DYSPNOEA [None]
  - PRURITUS [None]
